FAERS Safety Report 7928750-0 (Version None)
Quarter: 2011Q4

REPORT INFORMATION
  Report Type: 
  Country: None (occurrence: None)
  Receive Date: 20111118
  Receipt Date: 20111117
  Transmission Date: 20120403
  Serious: No
  Sender: FDA-Public Use
  Company Number: US-B.I. PHARMACEUTICALS,INC./RIDGEFIELD-2011-BP-26474BP

PATIENT
  Sex: Female

DRUGS (5)
  1. TRIAMTERENE [Concomitant]
     Indication: HYPERTENSION
     Route: 048
  2. ASPIRIN [Concomitant]
     Indication: PROPHYLAXIS
     Dosage: 325 MG
  3. SPIRIVA [Suspect]
     Indication: CHRONIC OBSTRUCTIVE PULMONARY DISEASE
     Dosage: 18 MCG
     Route: 055
     Dates: start: 20100101
  4. SYNTHROID [Concomitant]
     Indication: HYPOTHYROIDISM
  5. DIOVAN [Concomitant]
     Indication: HYPERTENSION
     Route: 048

REACTIONS (1)
  - DRUG INEFFECTIVE [None]
